FAERS Safety Report 15127004 (Version 1)
Quarter: 2018Q3

REPORT INFORMATION
  Report Type: Spontaneous
  Country: US (occurrence: US)
  Receive Date: 20180614
  Receipt Date: 20180614
  Transmission Date: 20181010
  Serious: No
  Sender: FDA-Public Use
  Company Number: None

PATIENT
  Age: 47 Year
  Sex: Female
  Weight: 60.78 kg

DRUGS (2)
  1. BUPROPION HCL [Suspect]
     Active Substance: BUPROPION HYDROCHLORIDE
     Indication: MAJOR DEPRESSION
     Route: 048
     Dates: start: 20180516, end: 20180602
  2. DULOXETINE. [Concomitant]
     Active Substance: DULOXETINE

REACTIONS (10)
  - Emotional disorder [None]
  - Insomnia [None]
  - Suicidal ideation [None]
  - Affective disorder [None]
  - Depression [None]
  - Product substitution issue [None]
  - Irritability [None]
  - Headache [None]
  - Tinnitus [None]
  - Sedation [None]

NARRATIVE: CASE EVENT DATE: 20180522
